FAERS Safety Report 10866326 (Version 1)
Quarter: 2015Q1

REPORT INFORMATION
  Report Type: Spontaneous
  Country: US (occurrence: None)
  Receive Date: 20150220
  Receipt Date: 20150220
  Transmission Date: 20150721
  Serious: Yes (Other)
  Sender: FDA-Public Use
  Company Number: 2015JUB00045

PATIENT
  Age: 59 Year
  Sex: Female
  Weight: 49.4 kg

DRUGS (9)
  1. TOPIRAMATE. [Suspect]
     Active Substance: TOPIRAMATE
     Dates: end: 201408
  2. CLORAZEPATE [Concomitant]
     Active Substance: CLORAZEPATE DIPOTASSIUM
  3. VITAMIN D3 [Concomitant]
     Active Substance: CHOLECALCIFEROL
  4. MAGNESIUM OXIDE. [Concomitant]
     Active Substance: MAGNESIUM OXIDE
  5. CITALOPRAM [Concomitant]
     Active Substance: CITALOPRAM HYDROBROMIDE
  6. ASPIRIN. [Concomitant]
     Active Substance: ASPIRIN
  7. LAMOTRIGINE TABLETS 200MG (LAMOTRIGINE) TABLE T [Suspect]
     Active Substance: LAMOTRIGINE
     Indication: GENERALISED TONIC-CLONIC SEIZURE
     Route: 048
     Dates: start: 2007, end: 201408
  8. CALCIUM [Concomitant]
     Active Substance: CALCIUM
  9. LAMOTRIGINE TABLETS 200MG (LAMOTRIGINE) TABLE T [Suspect]
     Active Substance: LAMOTRIGINE
     Indication: PARTIAL SEIZURES
     Route: 048
     Dates: start: 2007, end: 201408

REACTIONS (4)
  - Aura [None]
  - Seizure [None]
  - Alopecia [None]
  - Drug ineffective [None]

NARRATIVE: CASE EVENT DATE: 2014
